FAERS Safety Report 4305831-4 (Version None)
Quarter: 2004Q1

REPORT INFORMATION
  Report Type: 
  Country: None (occurrence: None)
  Receive Date: 20040225
  Receipt Date: 20040211
  Transmission Date: 20041129
  Serious: Yes (Death)
  Sender: FDA-Public Use
  Company Number: F01200400270

PATIENT
  Sex: Male

DRUGS (3)
  1. PLAVIX [Suspect]
     Indication: PERIPHERAL VASCULAR DISORDER
     Dosage: 75 MG QD ORAL
     Route: 048
     Dates: start: 20030306
  2. NSAID [Concomitant]
  3. ACETYLSALICYLIC ACID SRT [Concomitant]

REACTIONS (1)
  - ACUTE RESPIRATORY FAILURE [None]
